FAERS Safety Report 22976568 (Version 2)
Quarter: 2023Q4

REPORT INFORMATION
  Report Type: Report from Study
  Country: US (occurrence: US)
  Receive Date: 20230925
  Receipt Date: 20231110
  Transmission Date: 20240110
  Serious: Yes (Hospitalization, Other)
  Sender: FDA-Public Use
  Company Number: US-TAKEDA-2023TUS092133

PATIENT
  Age: 77 Year
  Sex: Male

DRUGS (8)
  1. TEDUGLUTIDE [Suspect]
     Active Substance: TEDUGLUTIDE
     Indication: Short-bowel syndrome
     Dosage: 3.94 MILLIGRAM, QD
     Route: 042
     Dates: start: 20190306, end: 20210202
  2. TEDUGLUTIDE [Suspect]
     Active Substance: TEDUGLUTIDE
     Indication: Short-bowel syndrome
     Dosage: 3.94 MILLIGRAM, QD
     Route: 042
     Dates: start: 20190306, end: 20210202
  3. TEDUGLUTIDE [Suspect]
     Active Substance: TEDUGLUTIDE
     Indication: Short-bowel syndrome
     Dosage: 3.94 MILLIGRAM, QD
     Route: 042
     Dates: start: 20190306, end: 20210202
  4. TEDUGLUTIDE [Suspect]
     Active Substance: TEDUGLUTIDE
     Indication: Short-bowel syndrome
     Dosage: 3.94 MILLIGRAM, QD
     Route: 042
     Dates: start: 20190306, end: 20210202
  5. AUGMENTIN [Concomitant]
     Active Substance: AMOXICILLIN\CLAVULANATE POTASSIUM
     Dosage: 875 MILLIGRAM, BID
     Route: 042
     Dates: start: 20201013
  6. OXYCODONE [Concomitant]
     Active Substance: OXYCODONE
     Indication: Pain management
     Dosage: 5 MILLIGRAM, QD
     Route: 048
  7. NYSTATIN [Concomitant]
     Active Substance: NYSTATIN
     Indication: Anal injury
     Dosage: 100000 INTERNATIONAL UNIT, QD
     Route: 048
  8. MEGACE ES [Concomitant]
     Active Substance: MEGESTROL ACETATE
     Indication: Weight decreased
     Dosage: 625 MILLIGRAM, QD
     Route: 048

REACTIONS (1)
  - Bacteraemia [Recovered/Resolved]

NARRATIVE: CASE EVENT DATE: 20190831
